FAERS Safety Report 8878101 (Version 1)
Quarter: 2012Q4

REPORT INFORMATION
  Report Type: Spontaneous
  Country: US (occurrence: None)
  Receive Date: 20121026
  Receipt Date: 20121026
  Transmission Date: 20130627
  Serious: Yes (Other)
  Sender: FDA-Public Use
  Company Number: 2012CP000140

PATIENT
  Age: 1 Month
  Sex: Female

DRUGS (4)
  1. PERFALGAN [Suspect]
     Dosage: 1 dosage form
     Route: 042
     Dates: start: 20120925, end: 20120927
  2. CEFOTAXIME SODIUM [Suspect]
     Dosage: 1 day
     Route: 042
     Dates: start: 20120925, end: 20120928
  3. AMOXICILLIN [Suspect]
     Dosage: 1 day
     Route: 042
     Dates: start: 20120925
  4. GENTAMICIN SULFATE [Suspect]
     Dosage: 1 day
     Route: 042
     Dates: start: 20120925

REACTIONS (2)
  - Hepatitis [None]
  - Hepatitis viral [None]
